FAERS Safety Report 6099781-3 (Version None)
Quarter: 2009Q1

REPORT INFORMATION
  Report Type: 
  Country: None (occurrence: None)
  Receive Date: 20090303
  Receipt Date: 20090217
  Transmission Date: 20090719
  Serious: Yes (Hospitalization, Other)
  Sender: FDA-Public Use
  Company Number: PHEH2009US01559

PATIENT
  Sex: Female

DRUGS (4)
  1. DIOVAN [Suspect]
     Dosage: 80 MG, QD
     Dates: start: 19980701, end: 20090131
  2. LEVOTHYROXINE SODIUM [Concomitant]
     Dosage: 75 MCG, QD
  3. HYDROCHLOROTHIAZIDE [Concomitant]
     Dosage: 25 MG, QD
  4. BONIVA [Concomitant]
     Dosage: UNK
     Dates: start: 20081101

REACTIONS (16)
  - ANOREXIA [None]
  - BIOPSY TONGUE [None]
  - DISCOMFORT [None]
  - DRUG HYPERSENSITIVITY [None]
  - DYSPHAGIA [None]
  - EATING DISORDER [None]
  - GLOSSITIS [None]
  - HEADACHE [None]
  - HYPOKALAEMIA [None]
  - INGUINAL HERNIA [None]
  - INGUINAL HERNIA REPAIR [None]
  - NECROSIS [None]
  - PAIN [None]
  - SWOLLEN TONGUE [None]
  - TEMPORAL ARTERITIS [None]
  - TONGUE DISCOLOURATION [None]
